FAERS Safety Report 17875786 (Version 1)
Quarter: 2020Q2

REPORT INFORMATION
  Report Type: Spontaneous
  Country: US (occurrence: US)
  Receive Date: 20200609
  Receipt Date: 20200609
  Transmission Date: 20200714
  Serious: Yes (Other)
  Sender: FDA-Public Use
  Company Number: NVSC2020US157818

PATIENT
  Age: 61 Year
  Sex: Male

DRUGS (1)
  1. LUTETIUM (177LU) OXODOTREOTIDE [Suspect]
     Active Substance: LUTETIUM OXODOTREOTIDE LU-177
     Indication: PHOSPHATURIC MESENCHYMAL TUMOUR
     Dosage: 200 MCI, Q2MO, (2 CYCLES 2 MONTHS APART)
     Route: 065

REACTIONS (3)
  - Phosphaturic mesenchymal tumour [Unknown]
  - Malignant neoplasm progression [Unknown]
  - Product use in unapproved indication [Unknown]
